FAERS Safety Report 7738587-3 (Version None)
Quarter: 2011Q3

REPORT INFORMATION
  Report Type: 
  Country: None (occurrence: None)
  Receive Date: 20110908
  Receipt Date: 20110825
  Transmission Date: 20111222
  Serious: Yes (Other)
  Sender: FDA-Public Use
  Company Number: DE-GENENTECH-323847

PATIENT
  Age: 73 Year
  Sex: Female

DRUGS (2)
  1. BENDAMUSTINE [Concomitant]
     Indication: B-CELL LYMPHOMA
     Dosage: UNK
  2. MABTHERA [Suspect]
     Indication: B-CELL LYMPHOMA
     Dosage: UNK
     Route: 065

REACTIONS (1)
  - POLYMYALGIA RHEUMATICA [None]
